FAERS Safety Report 5569263-3 (Version None)
Quarter: 2007Q4

REPORT INFORMATION
  Report Type: 
  Country: None (occurrence: None)
  Receive Date: 20071220
  Receipt Date: 20071001
  Transmission Date: 20080405
  Serious: No
  Sender: FDA-Public Use
  Company Number: A0685314A

PATIENT
  Age: 63 Year
  Sex: Male

DRUGS (2)
  1. AVODART [Suspect]
     Indication: BENIGN PROSTATIC HYPERPLASIA
     Route: 048
     Dates: start: 20070701, end: 20070901
  2. UROXATRAL [Concomitant]

REACTIONS (2)
  - BREAST ENLARGEMENT [None]
  - BREAST TENDERNESS [None]
